FAERS Safety Report 8590199-8 (Version None)
Quarter: 2012Q3

REPORT INFORMATION
  Report Type: 
  Country: None (occurrence: None)
  Receive Date: 20120813
  Receipt Date: 20120803
  Transmission Date: 20120928
  Serious: Yes (Hospitalization)
  Sender: FDA-Public Use
  Company Number: US-ASTRAZENECA-2012SE55100

PATIENT
  Age: 70 Year
  Sex: Male
  Weight: 79.8 kg

DRUGS (7)
  1. PREDNISONE TAB [Concomitant]
     Indication: CHRONIC OBSTRUCTIVE PULMONARY DISEASE
  2. SYMBICORT [Suspect]
     Dosage: 320MCG BID
     Route: 055
     Dates: start: 20091001
  3. AZITHROMYCIN [Concomitant]
     Indication: BRONCHITIS
  4. SYMBICORT [Suspect]
     Indication: CHRONIC OBSTRUCTIVE PULMONARY DISEASE
     Dosage: 320MCG BID
     Route: 055
     Dates: start: 20070101, end: 20080101
  5. SPIRIVA [Concomitant]
     Indication: CHRONIC OBSTRUCTIVE PULMONARY DISEASE
  6. ALBUTEROL [Concomitant]
     Indication: CHRONIC OBSTRUCTIVE PULMONARY DISEASE
  7. THEOPHYLLINE [Concomitant]
     Indication: CHRONIC OBSTRUCTIVE PULMONARY DISEASE

REACTIONS (3)
  - BRONCHITIS CHRONIC [None]
  - DYSPNOEA [None]
  - COUGH [None]
